FAERS Safety Report 4765606-9 (Version None)
Quarter: 2005Q3

REPORT INFORMATION
  Report Type: 
  Country: None (occurrence: None)
  Receive Date: 20050906
  Receipt Date: 20050826
  Transmission Date: 20060218
  Serious: Yes (Hospitalization, Other)
  Sender: FDA-Public Use
  Company Number: 2005-08-1926

PATIENT
  Sex: Male

DRUGS (2)
  1. TEMODAL [Suspect]
     Indication: OLIGODENDROGLIOMA
     Dosage: ORAL
     Route: 048
     Dates: end: 20050601
  2. NATULAN CAPSULES [Suspect]
     Indication: OLIGODENDROGLIOMA
     Dates: start: 20050801

REACTIONS (4)
  - BRONCHIOLITIS [None]
  - INFECTION [None]
  - NO THERAPEUTIC RESPONSE [None]
  - RESPIRATORY FAILURE [None]
